FAERS Safety Report 24730004 (Version 1)
Quarter: 2024Q4

REPORT INFORMATION
  Report Type: Spontaneous
  Country: CA (occurrence: CA)
  Receive Date: 20241213
  Receipt Date: 20241213
  Transmission Date: 20250114
  Serious: Yes (Other)
  Sender: GLAXOSMITHKLINE
  Company Number: CA-GSK-CA2024GSK155050

PATIENT

DRUGS (8)
  1. DOLUTEGRAVIR [Suspect]
     Active Substance: DOLUTEGRAVIR
     Indication: HIV infection
     Dosage: UNK
     Route: 064
  2. ZIDOVUDINE [Suspect]
     Active Substance: ZIDOVUDINE
     Indication: Prophylaxis against HIV infection
     Dosage: 4 MG/KG, BID
  3. ZIDOVUDINE [Suspect]
     Active Substance: ZIDOVUDINE
     Dosage: 12 MG/KG, BID
  4. LAMIVUDINE [Suspect]
     Active Substance: LAMIVUDINE
     Indication: Prophylaxis against HIV infection
     Dosage: 2 MG/KG, BID
  5. LAMIVUDINE [Suspect]
     Active Substance: LAMIVUDINE
     Dosage: 4 MG/KG, BID
  6. EMTRICITABINE\TENOFOVIR DISOPROXIL FUMARATE [Suspect]
     Active Substance: EMTRICITABINE\TENOFOVIR DISOPROXIL FUMARATE
     Indication: HIV infection
     Dosage: UNK
     Route: 064
  7. NEVIRAPINE [Suspect]
     Active Substance: NEVIRAPINE
     Indication: Prophylaxis against HIV infection
     Dosage: 6 MG/KG, BID
  8. NEVIRAPINE [Suspect]
     Active Substance: NEVIRAPINE
     Dosage: 200 MG/M2 BODY SURFACE AREA, BID

REACTIONS (5)
  - Neutropenia neonatal [Unknown]
  - Therapy cessation [Unknown]
  - Treatment noncompliance [Unknown]
  - Foetal exposure during pregnancy [Unknown]
  - Exposure via breast milk [Unknown]
